FAERS Safety Report 12678964 (Version 1)
Quarter: 2016Q3

REPORT INFORMATION
  Report Type: Spontaneous
  Country: US (occurrence: US)
  Receive Date: 20160824
  Receipt Date: 20160824
  Transmission Date: 20161109
  Serious: Yes (Hospitalization, Other)
  Sender: FDA-Public Use
  Company Number: US-CIPLA LTD.-2016US17356

PATIENT

DRUGS (5)
  1. AMPICILLIN [Suspect]
     Active Substance: AMPICILLIN
     Indication: AMNIOTIC CAVITY INFECTION
     Dosage: UNK
     Route: 065
  2. LAMIVUDINE/ZIDOVUDINE [Suspect]
     Active Substance: LAMIVUDINE\ZIDOVUDINE
     Indication: HIV INFECTION
     Dosage: UNK
     Route: 065
  3. LOPINAVIR/RITONAVIR [Suspect]
     Active Substance: LOPINAVIR\RITONAVIR
     Indication: HIV INFECTION
     Dosage: UNK
     Route: 065
  4. RALTEGRAVIR. [Suspect]
     Active Substance: RALTEGRAVIR
     Indication: HIV INFECTION
     Dosage: UNK
     Route: 065
     Dates: start: 20121223
  5. GENTAMICIN. [Suspect]
     Active Substance: GENTAMICIN
     Indication: AMNIOTIC CAVITY INFECTION
     Dosage: UNK
     Route: 065

REACTIONS (9)
  - Drug reaction with eosinophilia and systemic symptoms [Recovered/Resolved]
  - Anaemia macrocytic [Recovered/Resolved]
  - Postpartum haemorrhage [Unknown]
  - Disease recurrence [Unknown]
  - Exposure during pregnancy [Unknown]
  - Sepsis [Unknown]
  - Treatment noncompliance [Unknown]
  - Amniotic cavity infection [Unknown]
  - Urinary retention [Unknown]
